FAERS Safety Report 6157787-X (Version None)
Quarter: 2009Q2

REPORT INFORMATION
  Report Type: 
  Country: None (occurrence: None)
  Receive Date: 20090408
  Receipt Date: 20090330
  Transmission Date: 20091009
  Serious: Yes (Other)
  Sender: FDA-Public Use
  Company Number: THYM-1000950

PATIENT
  Age: 26 Year
  Sex: Female
  Weight: 42 kg

DRUGS (21)
  1. THYMOGLOBULIN [Suspect]
     Indication: LUNG TRANSPLANT REJECTION
     Dosage: 1.5 MG/KG, QD, INTRAVENOUS
     Route: 042
     Dates: start: 20090310, end: 20090311
  2. APAP (PARACETAMOL, PHENYLPROPANOLAMINE HYDROCHLORIDE, PHENYLTOLOXAMINE [Suspect]
     Indication: DRUG USE FOR UNKNOWN INDICATION
     Dosage: 2 G, ONCE
     Dates: start: 20090310
  3. TACROLIMUS [Concomitant]
  4. CELLCEPT [Concomitant]
  5. PREDNISONE TAB [Concomitant]
  6. VALCYTE [Concomitant]
  7. VANCO (VANCOMYCIN HYDROCHLORIDE) [Concomitant]
  8. LEVAQUIN [Concomitant]
  9. CALCIUM (CALCIUM) [Concomitant]
  10. VITAMIN D NOS (VITAMIN D NOS) [Concomitant]
  11. MAGNESIUM (MAGNESIUM OXIDE) [Concomitant]
  12. PRILOSEC [Concomitant]
  13. ACTIGALL [Concomitant]
  14. MEPRON [Concomitant]
  15. PANCREATIC ENZYMES (ULTRAS) (PANCREATIC ENZYMES (ULTRAS)) [Concomitant]
  16. AMPHOTERICIN B [Concomitant]
  17. COLISTIN (COLISTIN SODIUM METHANESULFONATE) [Concomitant]
  18. SOLU-MEDROL [Concomitant]
  19. BENADRYL (CAMPHOR, DIPHENHYDRAMINE HYDROCHLORIDE) [Concomitant]
  20. TYLENOL (PARACETAMOL, PSEUDOEPHEDRINE HYDROCHLORIDE) [Concomitant]
  21. INSULIN (SLIDING SCALE) (INSULIN (SLIDING SCALE)) [Concomitant]

REACTIONS (8)
  - ALANINE AMINOTRANSFERASE INCREASED [None]
  - ASPARTATE AMINOTRANSFERASE INCREASED [None]
  - BLOOD BILIRUBIN INCREASED [None]
  - COAGULOPATHY [None]
  - HEPATIC ENZYME INCREASED [None]
  - HEPATOTOXICITY [None]
  - TACHYCARDIA [None]
  - THROMBOCYTOPENIA [None]
